FAERS Safety Report 16877694 (Version 1)
Quarter: 2019Q4

REPORT INFORMATION
  Report Type: Spontaneous
  Country: US (occurrence: US)
  Receive Date: 20191002
  Receipt Date: 20191002
  Transmission Date: 20200122
  Serious: Yes (Hospitalization)
  Sender: FDA-Public Use
  Company Number: None

PATIENT
  Age: 23 Year
  Sex: Female
  Weight: 72.9 kg

DRUGS (10)
  1. LIDOCAINE. [Suspect]
     Active Substance: LIDOCAINE
     Indication: POSTOPERATIVE ANALGESIA
     Route: 041
     Dates: start: 20181211, end: 20181211
  2. PROMETHAZINE 12.5MG [Concomitant]
     Dates: start: 20181210, end: 20181211
  3. PROCHLORPERAZINE 5MG [Concomitant]
     Dates: start: 20181210, end: 20181217
  4. ZEMURON 50MG [Concomitant]
     Dates: start: 20181211, end: 20181211
  5. ONDANSETRON 4MG [Concomitant]
     Active Substance: ONDANSETRON
     Dates: start: 20181210, end: 20181211
  6. BUSPIRONE 30MG [Concomitant]
     Dates: start: 20181210, end: 20181217
  7. OXYCODONE 5MG [Concomitant]
     Active Substance: OXYCODONE
     Dates: start: 20181210, end: 20181210
  8. ALPRAZOLAM 0.5MG [Concomitant]
     Active Substance: ALPRAZOLAM
     Dates: start: 20181210, end: 20181217
  9. SUCCINYLCHLOINE 100MG [Concomitant]
     Dates: start: 20181211, end: 20181211
  10. PROPOFOL 200MG [Concomitant]
     Dates: start: 20181211, end: 20181211

REACTIONS (2)
  - Diplopia [None]
  - Mydriasis [None]

NARRATIVE: CASE EVENT DATE: 20181211
